FAERS Safety Report 6609905-4 (Version None)
Quarter: 2010Q1

REPORT INFORMATION
  Report Type: 
  Country: None (occurrence: None)
  Receive Date: 20100302
  Receipt Date: 20100226
  Transmission Date: 20100710
  Serious: Yes (Death)
  Sender: FDA-Public Use
  Company Number: PHHY2009JP57228

PATIENT
  Sex: Male

DRUGS (7)
  1. ZOLEDRONATE T29581+ [Suspect]
     Indication: METASTASES TO BONE
     Dosage: 4MG (EVERY FOUR WEEKS)
     Route: 042
     Dates: start: 20080121, end: 20080527
  2. MOBIC [Concomitant]
     Indication: CANCER PAIN
     Dosage: 1 DF, UNK
     Route: 048
     Dates: start: 20071228, end: 20080707
  3. GOSHAJINKIGAN [Concomitant]
     Indication: PROPHYLAXIS
     Dosage: 7.5 G, UNK
     Route: 048
     Dates: start: 20071228, end: 20080707
  4. ACINON [Concomitant]
     Indication: PROPHYLAXIS
     Dosage: 2 DF, UNK
     Route: 048
     Dates: start: 20071228, end: 20080707
  5. CEPHARANTHIN [Concomitant]
     Dosage: 6 DF, UNK
     Route: 048
     Dates: start: 20080208, end: 20080707
  6. MORPHINE HYDROCHLORIDE [Concomitant]
     Indication: CANCER PAIN
     Dosage: 40 MG, UNK
     Route: 048
     Dates: start: 20080324, end: 20080707
  7. GASTER D [Concomitant]
     Indication: PROPHYLAXIS
     Dosage: 20 MG, UNK
     Route: 048
     Dates: start: 20080324, end: 20080707

REACTIONS (3)
  - BLOOD UREA INCREASED [None]
  - HYPOCALCAEMIA [None]
  - MALIGNANT NEOPLASM PROGRESSION [None]
